FAERS Safety Report 5225911-9 (Version None)
Quarter: 2007Q1

REPORT INFORMATION
  Report Type: 
  Country: None (occurrence: None)
  Receive Date: 20070129
  Receipt Date: 20070117
  Transmission Date: 20070707
  Serious: Yes (Hospitalization, Other)
  Sender: FDA-Public Use
  Company Number: GXKR2007ES00908

PATIENT
  Age: 37 Year
  Sex: Male

DRUGS (4)
  1. METHOTREXATE [Suspect]
     Indication: ANKYLOSING SPONDYLITIS
     Dosage: 7.5 MG - 10 MG/QW
  2. PREDNISONE [Suspect]
     Indication: ANKYLOSING SPONDYLITIS
     Dosage: 10 MG - 20 MG, QD,
  3. INFLIXIMAB (INFLIXIMAB) [Suspect]
     Indication: ANKYLOSING SPONDYLITIS
     Dosage: SEE IMAGE
  4. ANTIINFLAMMATORY/ANTIRHEUMATIC  NON-STEROIDS (NO INGREDIENTS/SUBSTANCE [Concomitant]

REACTIONS (10)
  - ANAEMIA [None]
  - ANTIBODY TEST POSITIVE [None]
  - DISEASE PROGRESSION [None]
  - DRUG INTERACTION [None]
  - GASTROINTESTINAL ULCER HAEMORRHAGE [None]
  - KAPOSI'S SARCOMA [None]
  - MOUTH PLAQUE [None]
  - NODULE [None]
  - ULCER [None]
  - VIRAL TEST POSITIVE [None]
